FAERS Safety Report 25095625 (Version 1)
Quarter: 2025Q1

REPORT INFORMATION
  Report Type: Spontaneous
  Country: US (occurrence: US)
  Receive Date: 20250319
  Receipt Date: 20250319
  Transmission Date: 20250409
  Serious: No
  Sender: MERZ
  Company Number: US-BIOGEN-2024BI01257844

PATIENT
  Sex: Female

DRUGS (1)
  1. AMPYRA [Suspect]
     Active Substance: DALFAMPRIDINE
     Indication: Gait disturbance
     Dosage: 10 MILLIGRAM, BID
     Route: 048
     Dates: end: 202308

REACTIONS (9)
  - Peroneal nerve palsy [Unknown]
  - Condition aggravated [Unknown]
  - Muscle discomfort [Unknown]
  - Condition aggravated [Unknown]
  - Unevaluable event [Unknown]
  - Gait disturbance [Unknown]
  - Multiple sclerosis [Unknown]
  - Therapy cessation [Unknown]
  - Gait disturbance [Unknown]

NARRATIVE: CASE EVENT DATE: 20230101
